FAERS Safety Report 7036017-0 (Version None)
Quarter: 2010Q4

REPORT INFORMATION
  Report Type: 
  Country: None (occurrence: None)
  Receive Date: 20101008
  Receipt Date: 20100316
  Transmission Date: 20110411
  Serious: Yes (Death, Hospitalization)
  Sender: FDA-Public Use
  Company Number: US-ELI_LILLY_AND_COMPANY-US201003002064

PATIENT
  Sex: Male
  Weight: 58.2 kg

DRUGS (7)
  1. CETUXIMAB [Suspect]
     Indication: NON-SMALL CELL LUNG CANCER
     Dosage: 465 MG, UNK
     Dates: start: 20100104, end: 20100301
  2. GEMCITABINE HCL [Suspect]
     Indication: NON-SMALL CELL LUNG CANCER
     Dosage: 1860 MG, UNK
     Dates: start: 20100104, end: 20100301
  3. CARBOPLATIN [Suspect]
     Indication: NON-SMALL CELL LUNG CANCER
     Dosage: 478 MG, UNK
     Dates: start: 20100104, end: 20100223
  4. MORPHINE [Concomitant]
     Dosage: 30 MG, 2/D
  5. RITALIN [Concomitant]
     Dosage: 5 MG, 2/D
  6. MEGACE [Concomitant]
     Dosage: 625 MG, DAILY (1/D)
  7. ARIXTRA [Concomitant]
     Indication: DEEP VEIN THROMBOSIS
     Dosage: 7.5 MG, DAILY (1/D)
     Dates: end: 20100304

REACTIONS (2)
  - LUNG INFECTION [None]
  - PLEURAL EFFUSION [None]
